FAERS Safety Report 6063487-7 (Version None)
Quarter: 2009Q1

REPORT INFORMATION
  Report Type: 
  Country: None (occurrence: None)
  Receive Date: 20090203
  Receipt Date: 20090129
  Transmission Date: 20090719
  Serious: No
  Sender: FDA-Public Use
  Company Number: US-B.I. PHARMACEUTICALS,INC./RIDGEFIELD-2009-BP-01159BP

PATIENT
  Sex: Female

DRUGS (5)
  1. COMBIVENT [Suspect]
     Indication: CHRONIC OBSTRUCTIVE PULMONARY DISEASE
     Dosage: 4PUF
     Route: 055
     Dates: start: 20080101, end: 20090101
  2. COMBIVENT [Suspect]
     Indication: ASTHMA
  3. TOPROL-XL [Concomitant]
     Indication: HYPERTENSION
  4. WATER PILL [Concomitant]
     Indication: HYPERTENSION
  5. FOSAMAX [Concomitant]
     Indication: BONE DISORDER

REACTIONS (4)
  - ARTHRITIS [None]
  - BLOOD CHOLESTEROL INCREASED [None]
  - GOUT [None]
  - THERAPEUTIC RESPONSE DECREASED [None]
